FAERS Safety Report 25574632 (Version 1)
Quarter: 2025Q3

REPORT INFORMATION
  Report Type: Spontaneous
  Country: US (occurrence: US)
  Receive Date: 20250718
  Receipt Date: 20250718
  Transmission Date: 20251020
  Serious: Yes (Hospitalization)
  Sender: JOHNSON AND JOHNSON
  Company Number: US-JNJFOC-20250708015

PATIENT

DRUGS (2)
  1. CARVYKTI [Suspect]
     Active Substance: CILTACABTAGENE AUTOLEUCEL
     Indication: Plasma cell myeloma
     Route: 065
  2. IDECABTAGENE VICLEUCEL [Suspect]
     Active Substance: IDECABTAGENE VICLEUCEL
     Indication: Plasma cell myeloma
     Route: 065

REACTIONS (15)
  - Myelitis transverse [Unknown]
  - Fungal infection [Unknown]
  - Immune effector cell-associated neurotoxicity syndrome [Unknown]
  - Cytokine release syndrome [Unknown]
  - Bacteraemia [Unknown]
  - Colitis [Unknown]
  - Pneumonia [Unknown]
  - Facial paralysis [Unknown]
  - Bacterial infection [Unknown]
  - Urinary tract infection [Unknown]
  - Parkinsonism [Unknown]
  - Soft tissue infection [Unknown]
  - Clostridium difficile infection [Unknown]
  - Viral infection [Unknown]
  - Tremor [Unknown]
